FAERS Safety Report 22535272 (Version 1)
Quarter: 2023Q2

REPORT INFORMATION
  Report Type: Spontaneous
  Country: US (occurrence: None)
  Receive Date: 20230607
  Receipt Date: 20230607
  Transmission Date: 20230721
  Serious: Yes (Hospitalization)
  Sender: FDA-Public Use
  Company Number: None

PATIENT
  Age: 54 Year
  Sex: Female
  Weight: 85.5 kg

DRUGS (1)
  1. CARVYKTI [Suspect]
     Active Substance: CILTACABTAGENE AUTOLEUCEL
     Dates: start: 20230501, end: 20230501

REACTIONS (9)
  - Pyrexia [None]
  - Hypotension [None]
  - Cytokine release syndrome [None]
  - Rash [None]
  - Hepatic enzyme increased [None]
  - Diplopia [None]
  - Tremor [None]
  - Neurotoxicity [None]
  - Muscular weakness [None]

NARRATIVE: CASE EVENT DATE: 20230508
